FAERS Safety Report 9759575 (Version 1)
Quarter: 2013Q4

REPORT INFORMATION
  Report Type: Spontaneous
  Country: US (occurrence: US)
  Receive Date: 20131216
  Receipt Date: 20131216
  Transmission Date: 20140711
  Serious: No
  Sender: FDA-Public Use
  Company Number: US-GILEAD-2010-0028062

PATIENT
  Sex: Female
  Weight: 68.95 kg

DRUGS (17)
  1. LETAIRIS [Suspect]
     Indication: PULMONARY ARTERIAL HYPERTENSION
     Route: 048
     Dates: start: 20100301
  2. ASPIRIN [Concomitant]
  3. FUROSEMIDE [Concomitant]
  4. LISINOPRIL [Concomitant]
  5. METOPROLOL TARTRATE [Concomitant]
  6. NIFEDIPINE [Concomitant]
  7. HYDRALAZINE [Concomitant]
  8. TEKTURNA [Concomitant]
  9. VYTORIN [Concomitant]
  10. SERTRALINE [Concomitant]
  11. XANAX [Concomitant]
  12. PANTOPRAZOLE [Concomitant]
  13. MIRALAX [Concomitant]
  14. FENTANYL [Concomitant]
  15. POTASSIUM CHLORIDE [Concomitant]
  16. CALCIUM +D [Concomitant]
  17. A-Z MULTIVITAMIN [Concomitant]

REACTIONS (1)
  - Swelling [Unknown]
